FAERS Safety Report 11109228 (Version 1)
Quarter: 2015Q2

REPORT INFORMATION
  Report Type: Spontaneous
  Country: GB (occurrence: None)
  Receive Date: 20150511
  Receipt Date: 20150511
  Transmission Date: 20150821
  Serious: Yes (Hospitalization)
  Sender: FDA-Public Use
  Company Number: SP09397

PATIENT
  Age: 31 Year
  Sex: Male

DRUGS (1)
  1. APRISO [Suspect]
     Active Substance: MESALAMINE
     Indication: COLITIS ULCERATIVE
     Dosage: 4.8 GM (2.4 GM,2 IN 1 D)
     Route: 048

REACTIONS (13)
  - Electrocardiogram ST segment depression [None]
  - Cardiogenic shock [None]
  - Ejection fraction abnormal [None]
  - Chest pain [None]
  - Disease progression [None]
  - Inflammatory marker increased [None]
  - Troponin increased [None]
  - Cardiomyopathy [None]
  - Myocarditis [None]
  - Thrombosis [None]
  - Cerebral infarction [None]
  - Colitis ulcerative [None]
  - Electrocardiogram T wave biphasic [None]
